FAERS Safety Report 25983150 (Version 1)
Quarter: 2025Q4

REPORT INFORMATION
  Report Type: Spontaneous
  Country: GB (occurrence: GB)
  Receive Date: 20251031
  Receipt Date: 20251031
  Transmission Date: 20260118
  Serious: Yes (Other)
  Sender: ACCORD
  Company Number: None

PATIENT
  Sex: Male

DRUGS (9)
  1. AZACITIDINE [Suspect]
     Active Substance: AZACITIDINE
     Indication: Acute myeloid leukaemia
     Dosage: 135 MG
  2. VENETOCLAX [Suspect]
     Active Substance: VENETOCLAX
     Indication: Acute myeloid leukaemia
     Dosage: 100 MG DAILY
  3. ONDANSETRON [Concomitant]
     Active Substance: ONDANSETRON
  4. ALLOPURINOL [Concomitant]
     Active Substance: ALLOPURINOL
  5. LOPERAMIDE [Concomitant]
     Active Substance: LOPERAMIDE
  6. METOCLOPRAMIDE [Concomitant]
     Active Substance: METOCLOPRAMIDE
  7. VALACYCLOVIR HYDROCHLORIDE [Concomitant]
     Active Substance: VALACYCLOVIR HYDROCHLORIDE
  8. POSACONAZOLE [Concomitant]
     Active Substance: POSACONAZOLE
  9. FILGRASTIM [Concomitant]
     Active Substance: FILGRASTIM

REACTIONS (5)
  - Constipation [Unknown]
  - Fatigue [Unknown]
  - Nausea [Unknown]
  - Neuropathy peripheral [Unknown]
  - Visual impairment [Unknown]

NARRATIVE: CASE EVENT DATE: 20251021
